FAERS Safety Report 7263839-3 (Version None)
Quarter: 2011Q1

REPORT INFORMATION
  Report Type: 
  Country: None (occurrence: None)
  Receive Date: 20110130
  Receipt Date: 20101217
  Transmission Date: 20110831
  Serious: No
  Sender: FDA-Public Use
  Company Number: US-ABBOTT-10P-163-0692284-00

PATIENT
  Sex: Female

DRUGS (7)
  1. HUMIRA [Suspect]
     Dosage: ONCE
  2. CALCIUM [Concomitant]
     Indication: MINERAL SUPPLEMENTATION
  3. HUMIRA [Suspect]
     Dosage: 1 EVERY 2 WEEKS; MAINTENANCE DOSE
  4. HUMIRA [Suspect]
     Indication: CROHN'S DISEASE
     Dosage: LOADING DOSE; ONCE
     Dates: start: 20101209, end: 20101209
  5. ASACOL [Concomitant]
     Indication: CROHN'S DISEASE
  6. VITAMIN D [Concomitant]
     Indication: VITAMIN SUPPLEMENTATION
  7. PREDNISONE [Concomitant]
     Indication: CROHN'S DISEASE
     Dosage: DAILY; WEANING OFF OF FOR CROHN'S

REACTIONS (6)
  - NASAL CONGESTION [None]
  - OROPHARYNGEAL PAIN [None]
  - SPEECH DISORDER [None]
  - FATIGUE [None]
  - DYSPHAGIA [None]
  - MALAISE [None]
